FAERS Safety Report 25496746 (Version 1)
Quarter: 2025Q3

REPORT INFORMATION
  Report Type: Spontaneous
  Country: US (occurrence: US)
  Receive Date: 20250701
  Receipt Date: 20250701
  Transmission Date: 20251020
  Serious: Yes (Other)
  Sender: JUBILANT
  Company Number: None

PATIENT
  Age: 31 Year
  Sex: Male

DRUGS (12)
  1. CLONIDINE [Interacting]
     Active Substance: CLONIDINE
     Indication: Anxiety
     Dosage: 0.1 MG, ONCE PER DAY, AT DINNER TIME
  2. RISPERIDONE [Interacting]
     Active Substance: RISPERIDONE
     Indication: Delusion
     Dosage: 0.5 MG, 2 TIMES PER DAY
  3. RISPERIDONE [Interacting]
     Active Substance: RISPERIDONE
     Dosage: 1.5 MG, ONCE PER DAY, DOSE WAS INCREASED TO 0.5MG IN AM AND 1.0MG AT HS
  4. VALPROIC ACID [Interacting]
     Active Substance: VALPROIC ACID
     Indication: Aggression
     Dosage: 625 MG, 2 TIMES PER DAY
  5. VALPROIC ACID [Interacting]
     Active Substance: VALPROIC ACID
     Indication: Euphoric mood
  6. CLONAZEPAM [Interacting]
     Active Substance: CLONAZEPAM
     Indication: Anxiety
     Dosage: 0.25 MG, ONCE PER DAY, AM
  7. CLONAZEPAM [Interacting]
     Active Substance: CLONAZEPAM
     Dosage: 0.75 MG, ONCE PER DAY, 0.25 MG IN AM AND 0.5MG AT HS
  8. CLONAZEPAM [Interacting]
     Active Substance: CLONAZEPAM
     Dosage: 0.5 MG, 2 TIMES PER DAY, DOSE INCREASED
  9. MODAFINIL [Interacting]
     Active Substance: MODAFINIL
     Indication: Somnolence
     Dosage: 100 MG, ONCE PER DAY,AM
  10. SERTRALINE [Interacting]
     Active Substance: SERTRALINE HYDROCHLORIDE
     Indication: Anxiety
  11. LITHIUM [Concomitant]
     Active Substance: LITHIUM
     Indication: Aggression
     Dosage: 750 MG, ONCE PER DAY
  12. LITHIUM [Concomitant]
     Active Substance: LITHIUM
     Indication: Euphoric mood
     Dosage: 600 MG, ONCE PER DAY, DECREASED

REACTIONS (4)
  - Affective disorder [Recovering/Resolving]
  - Behaviour disorder [Recovering/Resolving]
  - Drug interaction [Recovering/Resolving]
  - Condition aggravated [Recovering/Resolving]
